FAERS Safety Report 13755541 (Version 1)
Quarter: 2017Q3

REPORT INFORMATION
  Report Type: Spontaneous
  Country: US (occurrence: US)
  Receive Date: 20170714
  Receipt Date: 20170714
  Transmission Date: 20171127
  Serious: No
  Sender: FDA-Public Use
  Company Number: US-PFIZER INC-2017303043

PATIENT
  Age: 60 Year
  Sex: Female

DRUGS (1)
  1. XELJANZ [Suspect]
     Active Substance: TOFACITINIB CITRATE
     Dosage: 5 MG, UNK

REACTIONS (8)
  - Arthralgia [Recovering/Resolving]
  - Musculoskeletal stiffness [Recovering/Resolving]
  - Joint injury [Unknown]
  - Joint stiffness [Recovering/Resolving]
  - Joint range of motion decreased [Unknown]
  - Pain in extremity [Recovering/Resolving]
  - Dry eye [Unknown]
  - Joint contracture [Unknown]
